FAERS Safety Report 5022991-0 (Version None)
Quarter: 2006Q2

REPORT INFORMATION
  Report Type: 
  Country: None (occurrence: None)
  Receive Date: 20060426
  Receipt Date: 20060106
  Transmission Date: 20061013
  Serious: Yes (Other)
  Sender: FDA-Public Use
  Company Number: 2006005595

PATIENT
  Age: 62 Year
  Sex: Female

DRUGS (5)
  1. LYRICA [Suspect]
     Indication: FIBROMYALGIA
     Dosage: ORAL
     Route: 048
  2. STOOL SOFTNER (DOCUSATE SODIUM) [Suspect]
     Indication: ILL-DEFINED DISORDER
  3. ARAVA [Suspect]
     Indication: ILL-DEFINED DISORDER
  4. PREDNISONE TAB [Concomitant]
  5. TEMAZEPAM [Concomitant]

REACTIONS (1)
  - DIARRHOEA [None]
